FAERS Safety Report 22119353 (Version 1)
Quarter: 2023Q1

REPORT INFORMATION
  Report Type: Spontaneous
  Country: CA (occurrence: CA)
  Receive Date: 20230321
  Receipt Date: 20230321
  Transmission Date: 20230418
  Serious: Yes (Other)
  Sender: FDA-Public Use
  Company Number: CA-GLAXOSMITHKLINE-CA2023AMR002614

PATIENT

DRUGS (5)
  1. BENLYSTA [Suspect]
     Active Substance: BELIMUMAB
     Indication: Lupus nephritis
     Dosage: 200 MG, WE (INJECTION Q1 WEEK)
     Route: 058
  2. ADALAT [Concomitant]
     Active Substance: NIFEDIPINE
     Indication: Product used for unknown indication
     Dosage: UNK
  3. PENTOXIFYLLINE [Concomitant]
     Active Substance: PENTOXIFYLLINE
     Indication: Product used for unknown indication
     Dosage: UNK
  4. ASPIRIN [Concomitant]
     Active Substance: ASPIRIN
     Indication: Product used for unknown indication
     Dosage: 80 MG
  5. VIAGRA [Concomitant]
     Active Substance: SILDENAFIL CITRATE
     Indication: Product used for unknown indication
     Dosage: UNK

REACTIONS (13)
  - Cutaneous lupus erythematosus [Unknown]
  - Cellulitis [Recovered/Resolved]
  - Skin ulcer [Recovered/Resolved]
  - Cellulite [Recovered/Resolved]
  - Pain [Recovered/Resolved]
  - Skin warm [Recovered/Resolved]
  - Fall [Unknown]
  - Sensitive skin [Unknown]
  - Wound [Unknown]
  - Cardiovascular disorder [Unknown]
  - Rash [Unknown]
  - Pruritus [Unknown]
  - Oedema [Unknown]

NARRATIVE: CASE EVENT DATE: 20230105
